FAERS Safety Report 14240880 (Version 1)
Quarter: 2017Q4

REPORT INFORMATION
  Report Type: Spontaneous
  Country: US (occurrence: US)
  Receive Date: 20171130
  Receipt Date: 20171130
  Transmission Date: 20180321
  Serious: Yes (Other)
  Sender: FDA-Public Use
  Company Number: US-AMGEN-USASP2017177947

PATIENT
  Age: 35 Year
  Sex: Female
  Weight: 80.45 kg

DRUGS (1)
  1. ENBREL [Suspect]
     Active Substance: ETANERCEPT
     Indication: PSORIATIC ARTHROPATHY
     Dosage: 50 MG, QWK
     Route: 065
     Dates: start: 201604

REACTIONS (2)
  - Psoriatic arthropathy [Unknown]
  - Night sweats [Unknown]

NARRATIVE: CASE EVENT DATE: 201708
